FAERS Safety Report 18160267 (Version 1)
Quarter: 2020Q3

REPORT INFORMATION
  Report Type: Spontaneous
  Country: US (occurrence: US)
  Receive Date: 20200818
  Receipt Date: 20200818
  Transmission Date: 20201103
  Serious: No
  Sender: FDA-Public Use
  Company Number: US-JNJFOC-20200805265

PATIENT
  Age: 28 Year
  Sex: Male
  Weight: 52.21 kg

DRUGS (1)
  1. MENS ROGAINE [Suspect]
     Active Substance: MINOXIDIL
     Indication: ALOPECIA
     Dosage: JUST WHAT IN THE DIRECTIONS TWICE A DAY, THE PATIENT LAST USED THE PRODUCT ON 01?AUG?2020.
     Route: 061
     Dates: start: 20200313

REACTIONS (1)
  - Headache [Recovered/Resolved]
